FAERS Safety Report 5860943-9 (Version None)
Quarter: 2008Q3

REPORT INFORMATION
  Report Type: 
  Country: None (occurrence: None)
  Receive Date: 20080826
  Receipt Date: 20080815
  Transmission Date: 20090109
  Serious: Yes (Hospitalization)
  Sender: FDA-Public Use
  Company Number: 2008AL005268

PATIENT
  Age: 90 Year
  Sex: Male
  Weight: 52.1637 kg

DRUGS (1)
  1. DIGOXIN [Suspect]
     Indication: CARDIAC FAILURE CONGESTIVE
     Dosage: 2 MG, BID, PO
     Route: 048
     Dates: start: 19900101, end: 20080101

REACTIONS (1)
  - NONSPECIFIC REACTION [None]
